FAERS Safety Report 8974479 (Version 4)
Quarter: 2013Q1

REPORT INFORMATION
  Report Type: Spontaneous
  Country: JP (occurrence: JP)
  Receive Date: 20121220
  Receipt Date: 20130313
  Transmission Date: 20140127
  Serious: Yes (Other)
  Sender: FDA-Public Use
  Company Number: JP-PFIZER INC-2012320469

PATIENT
  Age: 80 Year
  Sex: Female

DRUGS (3)
  1. CADUET [Suspect]
     Indication: LIPID METABOLISM DISORDER
     Dosage: 1 DF, DAILY
     Route: 048
     Dates: start: 20120529
  2. EDIROL [Suspect]
     Indication: OSTEOPOROSIS
     Dosage: UNK
     Route: 048
     Dates: start: 201205, end: 20130115
  3. LYRICA [Concomitant]
     Indication: NEURALGIA
     Dosage: 25 MG, 2X/DAY
     Route: 048
     Dates: start: 201210

REACTIONS (1)
  - Drug-induced liver injury [Recovered/Resolved]
